FAERS Safety Report 5057785-3 (Version None)
Quarter: 2006Q2

REPORT INFORMATION
  Report Type: 
  Country: None (occurrence: None)
  Receive Date: 20060627
  Receipt Date: 20060512
  Transmission Date: 20061013
  Serious: No
  Sender: FDA-Public Use
  Company Number: SP00860

PATIENT
  Sex: Female

DRUGS (2)
  1. XIFAXAN [Suspect]
     Indication: IRRITABLE BOWEL SYNDROME
     Dosage: 1200MG/QDX10DAYS-
     Dates: start: 20060501
  2. ZELNORM [Concomitant]

REACTIONS (3)
  - DIARRHOEA [None]
  - HEADACHE [None]
  - PRESCRIBED OVERDOSE [None]
